FAERS Safety Report 16664893 (Version 1)
Quarter: 2019Q3

REPORT INFORMATION
  Report Type: Spontaneous
  Country: US (occurrence: US)
  Receive Date: 20190803
  Receipt Date: 20190803
  Transmission Date: 20191004
  Serious: Yes (Other)
  Sender: FDA-Public Use
  Company Number: US-ACCORD-069814

PATIENT
  Age: 69 Year
  Sex: Female
  Weight: 163.29 kg

DRUGS (22)
  1. DOCETAXEL ACCORD [Suspect]
     Active Substance: DOCETAXEL
     Indication: INVASIVE DUCTAL BREAST CARCINOMA
     Dosage: NUMBER OF CYCLES: 06
     Dates: start: 20130131, end: 20130531
  2. BECLOMETASONE [Concomitant]
     Active Substance: BECLOMETHASONE DIPROPIONATE
     Dates: start: 20121126, end: 20130723
  3. DEXAMETHASONE. [Concomitant]
     Active Substance: DEXAMETHASONE
  4. PARAPLATIN [Suspect]
     Active Substance: CARBOPLATIN
     Indication: INVASIVE DUCTAL BREAST CARCINOMA
     Dosage: NO OF CYCLE: 06
     Dates: start: 20130131, end: 20130531
  5. HERCEPTIN [Suspect]
     Active Substance: TRASTUZUMAB
     Indication: INVASIVE DUCTAL BREAST CARCINOMA
     Dosage: NO OF CYCLE: 06
     Dates: start: 20130131, end: 20130531
  6. SALMETEROL [Concomitant]
     Active Substance: SALMETEROL
     Dates: start: 20121126, end: 20130723
  7. MELATONIN [Concomitant]
     Active Substance: MELATONIN
  8. TRASTUZUMAB. [Concomitant]
     Active Substance: TRASTUZUMAB
  9. CETIRIZINE [Concomitant]
     Active Substance: CETIRIZINE HYDROCHLORIDE
  10. WELLBUTRIN XL [Concomitant]
     Active Substance: BUPROPION HYDROCHLORIDE
     Dates: start: 20121126, end: 20130723
  11. PREDNISONE/PREDNISONE ACETATE [Concomitant]
  12. NEULASTA [Concomitant]
     Active Substance: PEGFILGRASTIM
  13. LOSARTAN. [Concomitant]
     Active Substance: LOSARTAN
     Dates: start: 20121126, end: 20130723
  14. ERGOCALCIFEROL. [Concomitant]
     Active Substance: ERGOCALCIFEROL
  15. ATROVENT HFA [Concomitant]
     Active Substance: IPRATROPIUM BROMIDE
     Dates: start: 20121126, end: 20130123
  16. CALCIUM CARBONATE/CALCIUM LACTOGLUCONATE [Concomitant]
  17. ONDANSETRON [Concomitant]
     Active Substance: ONDANSETRON
  18. FLUTICASONE/SALMETEROL [Concomitant]
  19. ALBUTEROL. [Concomitant]
     Active Substance: ALBUTEROL
     Dates: start: 20121126, end: 20130723
  20. HYDROCHLOROTHIAZIDE. [Concomitant]
     Active Substance: HYDROCHLOROTHIAZIDE
     Dates: start: 20121126, end: 20130123
  21. LORAZEPAM. [Concomitant]
     Active Substance: LORAZEPAM
  22. DIMETICONE [Concomitant]
     Active Substance: DIMETHICONE

REACTIONS (1)
  - Alopecia [Not Recovered/Not Resolved]

NARRATIVE: CASE EVENT DATE: 20130220
